FAERS Safety Report 23587192 (Version 1)
Quarter: 2024Q1

REPORT INFORMATION
  Report Type: Spontaneous
  Country: GB (occurrence: GB)
  Receive Date: 20240301
  Receipt Date: 20240301
  Transmission Date: 20240410
  Serious: Yes (Other)
  Sender: FDA-Public Use
  Company Number: None

PATIENT
  Age: 13 Year
  Sex: Male
  Weight: 46 kg

DRUGS (4)
  1. MONTELUKAST [Suspect]
     Active Substance: MONTELUKAST SODIUM
     Indication: Asthma
     Dosage: UNK UNK, QD ((AGE 6 - 14 YEARS); AT NIGHT)
     Route: 048
     Dates: start: 20230712, end: 20240209
  2. CREON [Concomitant]
     Active Substance: PANCRELIPASE AMYLASE\PANCRELIPASE LIPASE\PANCRELIPASE PROTEASE
     Indication: Ill-defined disorder
     Dosage: UNK (ONE WITH BREAKFAST, 2 WITH A MEAL AND ONE WITH)
     Route: 065
     Dates: start: 20220708
  3. MONTELUKAST [Concomitant]
     Active Substance: MONTELUKAST SODIUM
     Indication: Ill-defined disorder
     Dosage: 1 DOSAGE FORM, QD (GE 6 - 14 YEARS) TAKE ONE AT NIGHT)
     Route: 065
     Dates: start: 20231129, end: 20240209
  4. SYMBICORT [Concomitant]
     Active Substance: BUDESONIDE\FORMOTEROL FUMARATE DIHYDRATE
     Indication: Ill-defined disorder
     Dosage: UNK, PRN (1 PUFF TO BE TAKEN TWICE DAILY AND WHEN REQUIRED)
     Route: 065
     Dates: start: 20230816

REACTIONS (6)
  - Depression [Recovered/Resolved]
  - Withdrawal syndrome [Unknown]
  - Social avoidant behaviour [Unknown]
  - Tearfulness [Unknown]
  - Morose [Unknown]
  - Apathy [Unknown]

NARRATIVE: CASE EVENT DATE: 20240108
